FAERS Safety Report 15553090 (Version 3)
Quarter: 2018Q4

REPORT INFORMATION
  Report Type: Spontaneous
  Country: US (occurrence: US)
  Receive Date: 20181026
  Receipt Date: 20181120
  Transmission Date: 20190205
  Serious: No
  Sender: FDA-Public Use
  Company Number: US-JNJFOC-20181015557

PATIENT
  Sex: Female
  Weight: 48.99 kg

DRUGS (6)
  1. CALCIUM [Concomitant]
     Active Substance: CALCIUM
     Indication: OSTEOPOROSIS PROPHYLAXIS
     Route: 065
  2. VITAMIN D3 [Concomitant]
     Active Substance: CHOLECALCIFEROL
     Indication: OSTEOPOROSIS PROPHYLAXIS
     Route: 065
  3. WOMENS ROGAINE UNSCENTED [Suspect]
     Active Substance: MINOXIDIL
     Indication: ALOPECIA
     Route: 061
     Dates: start: 201810
  4. WOMENS ROGAINE UNSCENTED [Suspect]
     Active Substance: MINOXIDIL
     Indication: ALOPECIA
     Dosage: 1/2 CAPFUL
     Route: 061
     Dates: end: 2018
  5. TURMERIC [Concomitant]
     Active Substance: HERBALS\TURMERIC
     Indication: OSTEOPOROSIS PROPHYLAXIS
     Dosage: FROM ONE YEARS
     Route: 065
  6. BIOTIN [Concomitant]
     Active Substance: BIOTIN
     Indication: OSTEOPOROSIS PROPHYLAXIS
     Route: 065

REACTIONS (8)
  - Scab [Not Recovered/Not Resolved]
  - Product use in unapproved indication [Unknown]
  - Skin exfoliation [Not Recovered/Not Resolved]
  - Off label use [Unknown]
  - Erythema [Not Recovered/Not Resolved]
  - Skin irritation [Not Recovered/Not Resolved]
  - Alopecia [Not Recovered/Not Resolved]
  - Dry skin [Not Recovered/Not Resolved]

NARRATIVE: CASE EVENT DATE: 2018
